FAERS Safety Report 14193175 (Version 1)
Quarter: 2017Q4

REPORT INFORMATION
  Report Type: Spontaneous
  Country: US (occurrence: US)
  Receive Date: 20171115
  Receipt Date: 20171115
  Transmission Date: 20180321
  Serious: No
  Sender: FDA-Public Use
  Company Number: US-BAUSCH-BL-2016-028052

PATIENT
  Age: 40 Year
  Sex: Male

DRUGS (1)
  1. XENAZINE [Suspect]
     Active Substance: TETRABENAZINE
     Indication: CHOREA
     Route: 048
     Dates: start: 20150608

REACTIONS (3)
  - Asthma [Unknown]
  - Bronchitis [Unknown]
  - Anxiety [Unknown]

NARRATIVE: CASE EVENT DATE: 20161108
